FAERS Safety Report 9295467 (Version 1)
Quarter: 2013Q2

REPORT INFORMATION
  Report Type: Spontaneous
  Country: US (occurrence: None)
  Receive Date: 20130516
  Receipt Date: 20130516
  Transmission Date: 20140414
  Serious: Yes (Hospitalization)
  Sender: FDA-Public Use
  Company Number: None

PATIENT
  Age: 53 Year
  Sex: Male
  Weight: 65.3 kg

DRUGS (1)
  1. CETUXIMAB (ERBITUX) (714692) [Suspect]
     Dosage: 465 MG CYCLE 6 DOSE HELD, HOSPITAL ADMISSION, WILL NOT BE MADE UP. CYCLE 7 + 8 PLANNED TO CONTINUE

REACTIONS (3)
  - Pain [None]
  - Mucosal inflammation [None]
  - Speech disorder [None]
